FAERS Safety Report 4983831-9 (Version None)
Quarter: 2006Q1

REPORT INFORMATION
  Report Type: 
  Country: None (occurrence: None)
  Receive Date: 20060301
  Receipt Date: 20051220
  Transmission Date: 20060701
  Serious: No
  Sender: FDA-Public Use
  Company Number: S05-USA-05274-01

PATIENT
  Age: 48 Year
  Sex: Female

DRUGS (7)
  1. NAMENDA [Suspect]
     Indication: DEMENTIA ALZHEIMER'S TYPE
  2. ARICEPT [Concomitant]
  3. THYROID MEDICATION (NOS) [Concomitant]
  4. LORATADINE [Concomitant]
  5. PREVACID [Concomitant]
  6. TRAZODONE HCL [Concomitant]
  7. POTASSIUM [Concomitant]

REACTIONS (4)
  - AGITATION [None]
  - ANOREXIA [None]
  - HALLUCINATION [None]
  - URINARY TRACT INFECTION [None]
